FAERS Safety Report 19675616 (Version 1)
Quarter: 2021Q3

REPORT INFORMATION
  Report Type: Other
  Country: GB (occurrence: GB)
  Receive Date: 20210809
  Receipt Date: 20210809
  Transmission Date: 20211014
  Serious: Yes (Hospitalization)
  Sender: FDA-Public Use
  Company Number: GB-ROCHE-2758127

PATIENT
  Age: 54 Year
  Sex: Female

DRUGS (8)
  1. SALAMOL [Concomitant]
     Active Substance: ALBUTEROL
  2. MONTELUKAST [Concomitant]
     Active Substance: MONTELUKAST SODIUM
  3. DULOXETINE. [Concomitant]
     Active Substance: DULOXETINE
  4. ROACTEMRA [Suspect]
     Active Substance: TOCILIZUMAB
     Route: 058
     Dates: start: 202008
  5. FLUTICASONE. [Concomitant]
     Active Substance: FLUTICASONE
  6. AMITRIPTYLINE [Concomitant]
     Active Substance: AMITRIPTYLINE
  7. ROACTEMRA [Suspect]
     Active Substance: TOCILIZUMAB
     Indication: RHEUMATOID ARTHRITIS
     Route: 058
     Dates: start: 202004
  8. OMEPRAZOLE. [Concomitant]
     Active Substance: OMEPRAZOLE

REACTIONS (5)
  - Sialoadenitis [Unknown]
  - Immunodeficiency [Unknown]
  - Arthralgia [Unknown]
  - Infection [Unknown]
  - Inflammation [Unknown]
